FAERS Safety Report 10227880 (Version 2)
Quarter: 2014Q2

REPORT INFORMATION
  Report Type: Report from Study
  Country: BR (occurrence: BR)
  Receive Date: 20140610
  Receipt Date: 20140610
  Transmission Date: 20141212
  Serious: Yes (Other)
  Sender: FDA-Public Use
  Company Number: BR-ABBVIE-14P-020-1186126-00

PATIENT
  Age: 37 Year
  Sex: Female
  Weight: 65 kg

DRUGS (3)
  1. HUMIRA [Suspect]
     Indication: ANKYLOSING SPONDYLITIS
     Dosage: NOT SPECIFIED
     Route: 058
     Dates: start: 201301, end: 201305
  2. HUMIRA [Suspect]
     Dosage: NOT SPECIFIED
     Route: 058
     Dates: start: 20131116
  3. CYCLOBENZAPRINE [Concomitant]
     Indication: ANKYLOSING SPONDYLITIS
     Dosage: ONCE A DAY IN THE MORNING
     Route: 048

REACTIONS (7)
  - Haemorrhage [Recovered/Resolved]
  - Tooth infection [Recovered/Resolved]
  - Pulpitis dental [Recovered/Resolved]
  - Uveitis [Unknown]
  - Eye inflammation [Recovered/Resolved]
  - Inflammation [Recovered/Resolved]
  - Purulent discharge [Recovered/Resolved]
